FAERS Safety Report 15362157 (Version 2)
Quarter: 2018Q3

REPORT INFORMATION
  Report Type: Spontaneous
  Country: SE (occurrence: SE)
  Receive Date: 20180907
  Receipt Date: 20180915
  Transmission Date: 20181010
  Serious: Yes (Hospitalization)
  Sender: FDA-Public Use
  Company Number: SE-ABBVIE-18K-150-2477157-00

PATIENT
  Age: 68 Year
  Sex: Female

DRUGS (3)
  1. VENETOCLAX. [Suspect]
     Active Substance: VENETOCLAX
     Route: 048
     Dates: start: 20180910
  2. VENETOCLAX. [Suspect]
     Active Substance: VENETOCLAX
     Indication: ACUTE MYELOID LEUKAEMIA
     Route: 048
     Dates: start: 20180815, end: 20180910
  3. ENTOCORT [Concomitant]
     Active Substance: BUDESONIDE
     Indication: GRAFT VERSUS HOST DISEASE
     Route: 048
     Dates: start: 20180816

REACTIONS (7)
  - Infection [Unknown]
  - Bone marrow transplant [Recovered/Resolved]
  - Pyrexia [Recovered/Resolved]
  - Off label use [Unknown]
  - Autoimmune disorder [Unknown]
  - C-reactive protein increased [Recovered/Resolved]
  - Pericardial effusion [Unknown]

NARRATIVE: CASE EVENT DATE: 2018
